FAERS Safety Report 7399124-9 (Version None)
Quarter: 2011Q1

REPORT INFORMATION
  Report Type: 
  Country: None (occurrence: None)
  Receive Date: 20110328
  Receipt Date: 20110314
  Transmission Date: 20110831
  Serious: Yes (Death)
  Sender: FDA-Public Use
  Company Number: 2011001226

PATIENT
  Age: 65 Year
  Sex: Male

DRUGS (3)
  1. ERLOTINIB (ERLOTINIB) (TABLET) (ERLOTINIB) [Suspect]
     Indication: NON-SMALL CELL LUNG CANCER
     Dosage: 150 MG, QD, ORAL
     Route: 048
     Dates: start: 20090323, end: 20090424
  2. DEXAMETHASONE [Concomitant]
  3. OMEPRAZOLE [Concomitant]

REACTIONS (1)
  - PNEUMONIA [None]
